FAERS Safety Report 4626154-X (Version None)
Quarter: 2005Q2

REPORT INFORMATION
  Report Type: 
  Country: None (occurrence: None)
  Receive Date: 20050331
  Receipt Date: 20040611
  Transmission Date: 20051028
  Serious: Yes (Life-Threatening, Other)
  Sender: FDA-Public Use
  Company Number: 200412898BCC

PATIENT
  Age: 52 Year
  Sex: Female
  Weight: 52.1637 kg

DRUGS (2)
  1. ALEVE (CAPLET) [Suspect]
     Indication: ARTHRITIS
     Dosage: 220 MG, ONCE, ORAL
     Route: 048
     Dates: start: 20040609
  2. PREDNISONE [Concomitant]

REACTIONS (6)
  - ANGIONEUROTIC OEDEMA [None]
  - NAUSEA [None]
  - NERVOUSNESS [None]
  - OEDEMA PERIPHERAL [None]
  - PRURITUS GENERALISED [None]
  - SWOLLEN TONGUE [None]
